FAERS Safety Report 13225266 (Version 1)
Quarter: 2017Q1

REPORT INFORMATION
  Report Type: Spontaneous
  Country: US (occurrence: US)
  Receive Date: 20170210
  Receipt Date: 20170210
  Transmission Date: 20170428
  Serious: Yes (Hospitalization)
  Sender: FDA-Public Use
  Company Number: None

PATIENT
  Age: 57 Year
  Sex: Female
  Weight: 80.91 kg

DRUGS (9)
  1. LISINOPRIL. [Concomitant]
     Active Substance: LISINOPRIL
  2. RENVELA [Concomitant]
     Active Substance: SEVELAMER CARBONATE
  3. HYDROCODONE-ACETAMINOPHEN [Concomitant]
     Active Substance: ACETAMINOPHEN\HYDROCODONE
  4. FAMOTIDINE. [Concomitant]
     Active Substance: FAMOTIDINE
  5. AMITRIPTYLINE [Concomitant]
     Active Substance: AMITRIPTYLINE
  6. GABAPENTIN. [Concomitant]
     Active Substance: GABAPENTIN
  7. ZEPATIER [Suspect]
     Active Substance: ELBASVIR\GRAZOPREVIR
     Indication: HEPATITIS C
     Dosage: 50MG/100MG QD ORAL
     Route: 048
     Dates: start: 20160729, end: 20161024
  8. METOPROLOL. [Concomitant]
     Active Substance: METOPROLOL
  9. DIALYVITE [Concomitant]
     Active Substance: ASCORBIC ACID\BIOTIN\CALCIUM PANTOTHENATE\COBALAMIN\FOLIC ACID\NIACINAMIDE\PYRIDOXINE HYDROCHLORIDE\RIBOFLAVIN\THIAMINE MONONITRATE

REACTIONS (6)
  - Escherichia infection [None]
  - Acute respiratory failure [None]
  - Sepsis [None]
  - Hypotension [None]
  - Cellulitis [None]
  - Fistula [None]

NARRATIVE: CASE EVENT DATE: 20160822
